FAERS Safety Report 18229475 (Version 1)
Quarter: 2020Q3

REPORT INFORMATION
  Report Type: Spontaneous
  Country: US (occurrence: US)
  Receive Date: 20200903
  Receipt Date: 20200903
  Transmission Date: 20201103
  Serious: Yes (Other)
  Sender: FDA-Public Use
  Company Number: US-NAPPMUNDI-USA-2020-0151846

PATIENT

DRUGS (1)
  1. OXYCONTIN [Suspect]
     Active Substance: OXYCODONE HYDROCHLORIDE
     Indication: PRODUCT USED FOR UNKNOWN INDICATION
     Dosage: 1440 MG, DAILY
     Route: 048

REACTIONS (9)
  - Atrial fibrillation [Unknown]
  - Drug dependence [Unknown]
  - Tooth loss [Unknown]
  - Cardiac disorder [Unknown]
  - Tooth disorder [Unknown]
  - Concussion [Unknown]
  - Depression [Unknown]
  - Fatigue [Unknown]
  - Thirst [Unknown]
